FAERS Safety Report 8826728 (Version 1)
Quarter: 2012Q4

REPORT INFORMATION
  Report Type: 
  Country: US (occurrence: US)
  Receive Date: 20121005
  Receipt Date: 20121005
  Transmission Date: 20130627
  Serious: Yes (Hospitalization)
  Sender: FDA-Public Use
  Company Number: US-GLAXOSMITHKLINE-A0995621A

PATIENT
  Sex: Male

DRUGS (5)
  1. ADVAIR [Suspect]
     Indication: CHRONIC OBSTRUCTIVE PULMONARY DISEASE
     Dosage: 1PUFF Twice per day
     Route: 055
  2. SPIRIVA [Concomitant]
  3. SINGULAIR [Concomitant]
  4. ALBUTEROL [Concomitant]
  5. NEBULIZER [Concomitant]

REACTIONS (3)
  - Chronic obstructive pulmonary disease [Unknown]
  - Dyspnoea [Unknown]
  - Drug ineffective [Unknown]
